FAERS Safety Report 17656084 (Version 1)
Quarter: 2020Q2

REPORT INFORMATION
  Report Type: Spontaneous
  Country: SG (occurrence: SG)
  Receive Date: 20200410
  Receipt Date: 20200410
  Transmission Date: 20200713
  Serious: Yes (Hospitalization, Other)
  Sender: FDA-Public Use
  Company Number: NVSC2020SG095166

PATIENT
  Age: 56 Year
  Sex: Female

DRUGS (6)
  1. RISPERIDONE. [Suspect]
     Active Substance: RISPERIDONE
     Indication: BIPOLAR I DISORDER
     Dosage: 4 MG, QD
     Route: 065
  2. SULPIRIDE [Suspect]
     Active Substance: SULPIRIDE
     Indication: BIPOLAR I DISORDER
     Dosage: 400 MG, QD
     Route: 065
  3. HALOPERIDOL. [Suspect]
     Active Substance: HALOPERIDOL
     Indication: BIPOLAR I DISORDER
     Dosage: UNK
     Route: 065
  4. SODIUM VALPROATE [Suspect]
     Active Substance: VALPROATE SODIUM
     Indication: BIPOLAR I DISORDER
     Dosage: 1000 MG, QD
     Route: 065
  5. SODIUM VALPROATE [Suspect]
     Active Substance: VALPROATE SODIUM
     Dosage: 1200 MG, QD
     Route: 065
  6. ARIPIPRAZOLE. [Suspect]
     Active Substance: ARIPIPRAZOLE
     Indication: BIPOLAR I DISORDER
     Dosage: 10 MG, QD
     Route: 065

REACTIONS (19)
  - Bradycardia [Unknown]
  - Diarrhoea [Unknown]
  - Concomitant disease progression [Unknown]
  - Bicytopenia [Unknown]
  - Chronic kidney disease [Unknown]
  - Hypoxia [Unknown]
  - Mood altered [Unknown]
  - Fluid overload [Unknown]
  - Thrombocytopenia [Unknown]
  - Ventricular fibrillation [Unknown]
  - Respiratory failure [Unknown]
  - Bipolar I disorder [Unknown]
  - Euphoric mood [Unknown]
  - Electrocardiogram QT prolonged [Unknown]
  - Flight of ideas [Unknown]
  - Pressure of speech [Unknown]
  - Somnolence [Unknown]
  - Irritability [Unknown]
  - Poor quality sleep [Unknown]
